FAERS Safety Report 25791487 (Version 1)
Quarter: 2025Q3

REPORT INFORMATION
  Report Type: Spontaneous
  Country: US (occurrence: None)
  Receive Date: 20250911
  Receipt Date: 20250911
  Transmission Date: 20251020
  Serious: Yes (Hospitalization)
  Sender: FDA-CTU
  Company Number: None

PATIENT
  Age: 43 Year
  Sex: Male

DRUGS (6)
  1. MYCOPHENOLIC ACID [Suspect]
     Active Substance: MYCOPHENOLIC ACID
     Route: 048
  2. MYCOPHENOLIC ACID [Suspect]
     Active Substance: MYCOPHENOLIC ACID
     Dosage: FREQUENCY : AT BEDTIME;?
     Route: 048
     Dates: start: 20231106
  3. WARFARIN SODIUM [Suspect]
     Active Substance: WARFARIN SODIUM
  4. CARVEDILOL [Suspect]
     Active Substance: CARVEDILOL
  5. MAGNESIUM GLUCONATE [Suspect]
     Active Substance: MAGNESIUM GLUCONATE
  6. VITAMIN D [Suspect]
     Active Substance: VITAMIN D NOS

REACTIONS (2)
  - Dehydration [None]
  - International normalised ratio abnormal [None]

NARRATIVE: CASE EVENT DATE: 20250827
